FAERS Safety Report 9161233 (Version 2)
Quarter: 2013Q2

REPORT INFORMATION
  Report Type: Spontaneous
  Country: FR (occurrence: FR)
  Receive Date: 20130313
  Receipt Date: 20130620
  Transmission Date: 20140414
  Serious: Yes (Life-Threatening, Hospitalization, Disabling, Other)
  Sender: FDA-Public Use
  Company Number: FR-GLAXOSMITHKLINE-B0872974A

PATIENT
  Sex: Male
  Weight: 87 kg

DRUGS (3)
  1. ARIXTRA [Suspect]
     Indication: DEEP VEIN THROMBOSIS
     Dosage: 7.5MG PER DAY
     Route: 058
     Dates: start: 201201
  2. INNOHEP [Suspect]
     Indication: THROMBOSIS
     Dosage: 12000IU PER DAY
     Route: 058
     Dates: start: 2012
  3. LOVENOX [Suspect]
     Indication: THROMBOSIS
     Dosage: 10000IU TWICE PER DAY
     Route: 058
     Dates: start: 2012

REACTIONS (7)
  - Thrombosis [Recovered/Resolved with Sequelae]
  - Embolism arterial [Recovered/Resolved with Sequelae]
  - Amputation [Unknown]
  - Thrombocytopenia [Unknown]
  - Drug ineffective [Unknown]
  - Prescribed overdose [Unknown]
  - Incorrect drug administration duration [Unknown]
